FAERS Safety Report 8537941-X (Version None)
Quarter: 2012Q3

REPORT INFORMATION
  Report Type: 
  Country: None (occurrence: None)
  Receive Date: 20120725
  Receipt Date: 19900625
  Transmission Date: 20120928
  Serious: Yes (Death, Other)
  Sender: FDA-Public Use
  Company Number: US-ROCHE-1089301

PATIENT
  Sex: Male

DRUGS (1)
  1. ACTIVASE [Suspect]
     Indication: MYOCARDIAL INFARCTION

REACTIONS (5)
  - HYPOTENSION [None]
  - DRUG INEFFECTIVE [None]
  - AGONAL RHYTHM [None]
  - CARDIO-RESPIRATORY ARREST [None]
  - BRADYCARDIA [None]
